FAERS Safety Report 17019929 (Version 1)
Quarter: 2019Q4

REPORT INFORMATION
  Report Type: Spontaneous
  Country: US (occurrence: US)
  Receive Date: 20191004
  Receipt Date: 20191004
  Transmission Date: 20200122
  Serious: Yes (Hospitalization)
  Sender: FDA-Public Use
  Company Number: None

PATIENT
  Age: 54 Year
  Sex: Male
  Weight: 66.5 kg

DRUGS (1)
  1. CISPLATIN. [Suspect]
     Active Substance: CISPLATIN
     Dates: start: 20190911

REACTIONS (5)
  - Productive cough [None]
  - Chills [None]
  - Human metapneumovirus test positive [None]
  - Pyrexia [None]
  - Sputum discoloured [None]

NARRATIVE: CASE EVENT DATE: 20190916
